FAERS Safety Report 21756299 (Version 1)
Quarter: 2022Q4

REPORT INFORMATION
  Report Type: Spontaneous
  Country: IT (occurrence: IT)
  Receive Date: 20221220
  Receipt Date: 20221220
  Transmission Date: 20230112
  Serious: Yes (Hospitalization, Other)
  Sender: FDA-Public Use
  Company Number: IT-PHARMAMAR-2022PM000552

PATIENT
  Age: 72 Year
  Sex: Female
  Weight: 67 kg

DRUGS (11)
  1. ZEPZELCA [Suspect]
     Active Substance: LURBINECTEDIN
     Indication: Small cell lung cancer
     Dosage: 3.2 MILLIGRAM/SQ. METER FROM CYCLE 1 TO 4
     Route: 042
     Dates: start: 20220805, end: 20221012
  2. LEVOTHYROXINE SODIUM [Concomitant]
     Active Substance: LEVOTHYROXINE SODIUM
     Indication: Product used for unknown indication
     Dosage: UNK
  3. SPIRIVA [Concomitant]
     Active Substance: TIOTROPIUM BROMIDE MONOHYDRATE
     Indication: Product used for unknown indication
     Dosage: 1 DOSAGE FORM, BID
  4. LANSOPRAZOLE [Concomitant]
     Active Substance: LANSOPRAZOLE
     Indication: Product used for unknown indication
     Dosage: UNK, BID
  5. PREDNISONE [Concomitant]
     Active Substance: PREDNISONE
     Indication: Product used for unknown indication
     Dosage: 25 MILLIGRAM 1/2 TABLET DAY
     Route: 048
  6. ACETAMINOPHEN\CODEINE PHOSPHATE [Concomitant]
     Active Substance: ACETAMINOPHEN\CODEINE PHOSPHATE
     Indication: Product used for unknown indication
     Dosage: 1 TABLET EVERY 12 HOUR
     Route: 048
  7. FLUIMUCIL [Concomitant]
     Active Substance: ACETYLCYSTEINE
     Indication: Product used for unknown indication
     Dosage: AEROSOL: FLUIMUCIL 1 VIALS + PHYSIOLOGICAL SOLUTION 2-3 ML FOR TWICE A DAY FOR A MONTH
  8. SODIUM CHLORIDE [Concomitant]
     Active Substance: SODIUM CHLORIDE
     Indication: Product used for unknown indication
     Dosage: AEROSOL: FLUIMUCIL 1 VIALS + PHYSIOLOGICAL SOLUTION 2-3 ML FOR TWICE A DAY FOR A MONTH
  9. BECLOMETHASONE DIPROPIONATE [Concomitant]
     Active Substance: BECLOMETHASONE DIPROPIONATE
     Indication: Product used for unknown indication
     Dosage: AEROSOL: CLENIL 1 VIALS +BRONCOVALEAS 5 DROP +ATEM 1 VIALS ONCE A DAY FOR A MONTH
  10. BRONCOVALEAS [SALBUTAMOL] [Concomitant]
     Indication: Product used for unknown indication
     Dosage: AEROSOL: CLENIL 1 VIALS +BRONCOVALEAS 5 DROP +ATEM 1 VIALS ONCE A DAY FOR A MONTH
  11. IPRATROPIUM BROMIDE [Concomitant]
     Active Substance: IPRATROPIUM BROMIDE
     Indication: Product used for unknown indication
     Dosage: AEROSOL: CLENIL 1 VIALS +BRONCOVALEAS 5 DROP +ATEM 1 VIALS ONCE A DAY FOR A MONTH

REACTIONS (1)
  - Sepsis [Recovered/Resolved]

NARRATIVE: CASE EVENT DATE: 20221021
